FAERS Safety Report 19811293 (Version 1)
Quarter: 2021Q3

REPORT INFORMATION
  Report Type: Spontaneous
  Country: US (occurrence: US)
  Receive Date: 20210910
  Receipt Date: 20210910
  Transmission Date: 20211014
  Serious: No
  Sender: FDA-Public Use
  Company Number: US-ROCHE-2720095

PATIENT
  Sex: Male
  Weight: 74 kg

DRUGS (8)
  1. PEGASYS [Suspect]
     Active Substance: PEGINTERFERON ALFA-2A
     Indication: PLATELET COUNT INCREASED
     Dosage: THERAPY ONGOING STATUS: YES
     Route: 058
  2. ATORVASTATIN [Concomitant]
     Active Substance: ATORVASTATIN
  3. LOSARTAN. [Concomitant]
     Active Substance: LOSARTAN
     Indication: HYPERTENSION
  4. COENZYME Q10 [Concomitant]
     Active Substance: DIETARY SUPPLEMENT\UBIDECARENONE
  5. HYDROCHLOORTHIAZIDE [Concomitant]
     Active Substance: HYDROCHLOROTHIAZIDE
     Indication: HYPERTENSION
  6. CALCIUM CITRATE +D [Concomitant]
     Active Substance: CALCIUM CITRATE\VITAMIN D
  7. FISH OIL [Concomitant]
     Active Substance: FISH OIL
  8. ASPIRIN 81 [Concomitant]
     Active Substance: ASPIRIN

REACTIONS (3)
  - Weight decreased [Unknown]
  - Off label use [Unknown]
  - Intentional product use issue [Unknown]
